FAERS Safety Report 5917853-8 (Version None)
Quarter: 2008Q4

REPORT INFORMATION
  Report Type: 
  Country: None (occurrence: None)
  Receive Date: 20081014
  Receipt Date: 20080929
  Transmission Date: 20090506
  Serious: Yes (Other)
  Sender: FDA-Public Use
  Company Number: FR-JNJFOC-20080904709

PATIENT
  Sex: Male

DRUGS (10)
  1. TOPALGIC [Suspect]
     Route: 048
  2. TOPALGIC [Suspect]
     Route: 048
  3. TOPALGIC [Suspect]
     Route: 048
  4. TOPALGIC [Suspect]
     Indication: BACK PAIN
     Route: 048
  5. AMLOD [Concomitant]
  6. RAMIPRIL [Concomitant]
  7. ZOXON [Concomitant]
  8. FORMOTEROL FUMARATE [Concomitant]
  9. BUDESONIDE [Concomitant]
  10. ZOLPIDEM [Concomitant]

REACTIONS (8)
  - AGITATION [None]
  - DEPRESSION [None]
  - DRUG DEPENDENCE [None]
  - EXTRASYSTOLES [None]
  - FATIGUE [None]
  - PALPITATIONS [None]
  - SLEEP DISORDER [None]
  - WITHDRAWAL SYNDROME [None]
